FAERS Safety Report 6563057-8 (Version None)
Quarter: 2010Q1

REPORT INFORMATION
  Report Type: 
  Country: None (occurrence: None)
  Receive Date: 20100130
  Receipt Date: 20091207
  Transmission Date: 20100710
  Serious: No
  Sender: FDA-Public Use
  Company Number: US-ABBOTT-09P-163-0612914-00

PATIENT
  Sex: Male
  Weight: 131.66 kg

DRUGS (2)
  1. HUMIRA [Suspect]
     Indication: RHEUMATOID ARTHRITIS
  2. HUMIRA [Suspect]
     Dosage: PRE-FILLED SYRINGE
     Dates: start: 20021206

REACTIONS (2)
  - COUGH [None]
  - PYREXIA [None]
